FAERS Safety Report 8197534-3 (Version None)
Quarter: 2012Q1

REPORT INFORMATION
  Report Type: 
  Country: None (occurrence: None)
  Receive Date: 20120309
  Receipt Date: 20120307
  Transmission Date: 20120608
  Serious: Yes (Life-Threatening)
  Sender: FDA-Public Use
  Company Number: DE-TEVA-316483GER

PATIENT
  Age: 47 Year
  Sex: Female

DRUGS (13)
  1. LEVODOPA 25 [Concomitant]
     Dosage: 0-0-1
     Dates: start: 20081201
  2. BACLOFEN [Suspect]
     Indication: MUSCLE SPASTICITY
     Dosage: 50 MILLIGRAM;
     Route: 048
  3. AMIODARONE HCL [Suspect]
     Indication: TACHYARRHYTHMIA
     Dosage: 200 MILLIGRAM;
     Route: 048
     Dates: start: 20090301
  4. FERROUS SULFATE TAB [Concomitant]
     Dosage: 0-0-1
     Dates: start: 20081201
  5. DANTROLENE SODIUM [Suspect]
     Dosage: 2-0-2
     Dates: start: 20081201
  6. BACLOFEN [Suspect]
     Dosage: 1-0-1
     Dates: start: 20081201
  7. BEZAFIBRAT 400 [Concomitant]
     Dates: start: 20081201
  8. PROPAFENONE HCL [Concomitant]
     Dosage: 0.5-0-0
     Dates: start: 20081201
  9. TRIMIPRAMINE MALEATE [Suspect]
     Indication: DEPRESSION
     Dosage: 25 MILLIGRAM;
     Route: 048
  10. DANTROLENE SODIUM [Suspect]
     Indication: MUSCLE SPASTICITY
     Dosage: 75 MILLIGRAM;
     Route: 048
  11. STANGYL 0.5 [Concomitant]
     Dosage: 0-0-1
     Dates: start: 20081201
  12. MARCUMAR [Concomitant]
     Dates: start: 20081201
  13. SAB SIMPLEX [Concomitant]
     Dates: start: 20081201

REACTIONS (4)
  - DISTURBANCE IN ATTENTION [None]
  - HYPONATRAEMIA [None]
  - BRAIN OEDEMA [None]
  - MECHANICAL VENTILATION [None]
